FAERS Safety Report 6678661-6 (Version None)
Quarter: 2010Q2

REPORT INFORMATION
  Report Type: 
  Country: None (occurrence: None)
  Receive Date: 20100413
  Receipt Date: 20100331
  Transmission Date: 20101027
  Serious: Yes (Other)
  Sender: FDA-Public Use
  Company Number: US-PFIZER INC-2010042047

PATIENT
  Sex: Male
  Weight: 162 kg

DRUGS (2)
  1. CHANTIX [Suspect]
     Indication: SMOKING CESSATION THERAPY
     Dosage: 0.5 MG, 1X/DAY
     Route: 048
     Dates: start: 20090401, end: 20090101
  2. ABILIFY [Concomitant]
     Indication: SCHIZOPHRENIA
     Dosage: UNK

REACTIONS (6)
  - ABNORMAL BEHAVIOUR [None]
  - ABNORMAL DREAMS [None]
  - AGITATION [None]
  - DEPRESSED MOOD [None]
  - HOSTILITY [None]
  - SUICIDAL IDEATION [None]
